FAERS Safety Report 17153353 (Version 2)
Quarter: 2020Q1

REPORT INFORMATION
  Report Type: Spontaneous
  Country: US (occurrence: US)
  Receive Date: 20191213
  Receipt Date: 20200203
  Transmission Date: 20200409
  Serious: No
  Sender: FDA-Public Use
  Company Number: US-BAUSCH-BL-2019-062965

PATIENT
  Age: 35 Year
  Sex: Female
  Weight: 61.29 kg

DRUGS (1)
  1. NEOMYCIN/POLYMYXIN B SULFATES BACITRACIN ZINC/HYDROCORTISONE OPHT [Suspect]
     Active Substance: BACITRACIN ZINC\HYDROCORTISONE\NEOMYCIN SULFATE\POLYMYXIN B SULFATE
     Indication: PRODUCT USED FOR UNKNOWN INDICATION
     Dosage: AS DIRECTED, USED JUST A TINY AMOUNT
     Route: 047
     Dates: start: 20191122, end: 20191122

REACTIONS (3)
  - Prescription drug used without a prescription [Unknown]
  - Eye irritation [Recovered/Resolved]
  - Product quality issue [Unknown]

NARRATIVE: CASE EVENT DATE: 20191122
